FAERS Safety Report 20238713 (Version 8)
Quarter: 2022Q1

REPORT INFORMATION
  Report Type: Report from Study
  Country: JP (occurrence: None)
  Receive Date: 20211228
  Receipt Date: 20220222
  Transmission Date: 20220423
  Serious: Yes (Hospitalization)
  Sender: FDA-Public Use
  Company Number: JP-Eisai Medical Research-EC-2021-105805

PATIENT
  Age: 75 Year
  Sex: Male
  Weight: 52.5 kg

DRUGS (19)
  1. LENVATINIB [Suspect]
     Active Substance: LENVATINIB
     Indication: Squamous cell carcinoma of head and neck
     Dosage: FLUCTUATED DOSAGE
     Route: 048
     Dates: start: 20200728, end: 20211130
  2. LENVATINIB [Suspect]
     Active Substance: LENVATINIB
     Route: 048
     Dates: start: 20211201, end: 20211220
  3. LENVATINIB [Suspect]
     Active Substance: LENVATINIB
     Indication: Squamous cell carcinoma of head and neck
     Route: 048
     Dates: start: 20200728, end: 20211220
  4. PEMBROLIZUMAB [Suspect]
     Active Substance: PEMBROLIZUMAB
     Indication: Squamous cell carcinoma of head and neck
     Route: 041
     Dates: start: 20200728, end: 20211109
  5. PEMBROLIZUMAB [Suspect]
     Active Substance: PEMBROLIZUMAB
     Route: 041
     Dates: start: 20211130, end: 20211130
  6. LEVOTHYROXINE SODIUM [Concomitant]
     Active Substance: LEVOTHYROXINE SODIUM
     Dates: start: 20200721
  7. LOXOPROFEN SODIUM [Concomitant]
     Active Substance: LOXOPROFEN SODIUM
     Dates: start: 20200728
  8. HACHIAZULE [Concomitant]
     Route: 061
     Dates: start: 20200821
  9. AZUNOL [Concomitant]
     Dates: start: 20200925
  10. TAMSULOSIN [Concomitant]
     Active Substance: TAMSULOSIN
     Dates: start: 20200928
  11. TAMSULOSIN [Concomitant]
     Active Substance: TAMSULOSIN
     Dates: start: 20200928
  12. CALONAL [Concomitant]
     Active Substance: ACETAMINOPHEN
     Dates: start: 20200901
  13. CALONAL [Concomitant]
     Active Substance: ACETAMINOPHEN
     Dates: start: 20200929
  14. CALONAL [Concomitant]
     Active Substance: ACETAMINOPHEN
     Dates: start: 20200819
  15. CELECOXIB [Concomitant]
     Active Substance: CELECOXIB
     Dates: start: 20200819
  16. CELECOXIB [Concomitant]
     Active Substance: CELECOXIB
     Dates: start: 20200929
  17. CELECOXIB [Concomitant]
     Active Substance: CELECOXIB
     Dates: start: 20200819
  18. MAGNESIUM OXIDE [Concomitant]
     Active Substance: MAGNESIUM OXIDE
     Dates: start: 20201029
  19. MAGNESIUM OXIDE [Concomitant]
     Active Substance: MAGNESIUM OXIDE
     Dates: start: 20200928

REACTIONS (2)
  - Cholecystitis acute [Recovered/Resolved]
  - Decreased appetite [Recovered/Resolved]

NARRATIVE: CASE EVENT DATE: 20211214
